FAERS Safety Report 7627015-4 (Version None)
Quarter: 2011Q3

REPORT INFORMATION
  Report Type: 
  Country: None (occurrence: None)
  Receive Date: 20110721
  Receipt Date: 20110714
  Transmission Date: 20111222
  Serious: Yes (Other)
  Sender: FDA-Public Use
  Company Number: PHHY2011IT64389

PATIENT
  Age: 61 Year
  Sex: Female

DRUGS (3)
  1. INSULIN [Concomitant]
     Dosage: UNK
  2. RIBAVIRIN [Suspect]
     Dosage: UNK
     Dates: start: 20061001
  3. INTERFERON ALFA [Suspect]
     Dosage: UNK
     Dates: start: 20061001

REACTIONS (3)
  - RETINAL DETACHMENT [None]
  - VOGT-KOYANAGI-HARADA SYNDROME [None]
  - BLINDNESS [None]
